FAERS Safety Report 20101728 (Version 2)
Quarter: 2021Q4

REPORT INFORMATION
  Report Type: Spontaneous
  Country: CN (occurrence: None)
  Receive Date: 20211123
  Receipt Date: 20211203
  Transmission Date: 20220303
  Serious: Yes (Other)
  Sender: FDA-Public Use
  Company Number: CN-ROCHE-2957104

PATIENT
  Age: 50 Year
  Sex: Female

DRUGS (17)
  1. GAZYVA [Suspect]
     Active Substance: OBINUTUZUMAB
     Indication: Marginal zone lymphoma
     Route: 042
     Dates: start: 20211009
  2. GEMCITABINE [Concomitant]
     Active Substance: GEMCITABINE
     Indication: Marginal zone lymphoma
     Dosage: GDP
     Dates: start: 20210916
  3. GEMCITABINE [Concomitant]
     Active Substance: GEMCITABINE
     Dosage: GDP
     Dates: start: 20211009
  4. CISPLATIN [Concomitant]
     Active Substance: CISPLATIN
     Indication: Marginal zone lymphoma
     Dosage: GDP
     Dates: start: 20210916
  5. CISPLATIN [Concomitant]
     Active Substance: CISPLATIN
     Dosage: GDP
     Dates: start: 20211009
  6. DEXAMETHASONE [Concomitant]
     Active Substance: DEXAMETHASONE
     Indication: Marginal zone lymphoma
     Dosage: GDP
     Dates: start: 20210916
  7. DEXAMETHASONE [Concomitant]
     Active Substance: DEXAMETHASONE
     Dosage: GDP
     Dates: start: 20211009
  8. CYCLOPHOSPHAMIDE [Concomitant]
     Active Substance: CYCLOPHOSPHAMIDE
     Indication: Marginal zone lymphoma
     Dosage: CHOP
     Dates: start: 201907
  9. CYCLOPHOSPHAMIDE [Concomitant]
     Active Substance: CYCLOPHOSPHAMIDE
     Dosage: R-CHOP
     Dates: start: 20210621
  10. DOXORUBICIN [Concomitant]
     Active Substance: DOXORUBICIN
     Indication: Marginal zone lymphoma
     Dosage: CHOP
     Dates: start: 201907
  11. DOXORUBICIN [Concomitant]
     Active Substance: DOXORUBICIN
     Dosage: R-CHOP
     Dates: start: 20210621
  12. VINCRISTINE [Concomitant]
     Active Substance: VINCRISTINE
     Indication: Marginal zone lymphoma
     Dosage: CHOP
     Dates: start: 201907
  13. VINCRISTINE [Concomitant]
     Active Substance: VINCRISTINE
     Dosage: R-CHOP
     Dates: start: 20210621
  14. PREDNISONE [Concomitant]
     Active Substance: PREDNISONE
     Indication: Marginal zone lymphoma
     Dosage: CHOP
     Dates: start: 201907
  15. PREDNISONE [Concomitant]
     Active Substance: PREDNISONE
     Dosage: R-CHOP
     Dates: start: 20210621
  16. RITUXIMAB [Concomitant]
     Active Substance: RITUXIMAB
     Indication: Marginal zone lymphoma
     Dosage: R-CHOP
     Route: 065
     Dates: start: 20210621
  17. NIFEDIPINE [Concomitant]
     Active Substance: NIFEDIPINE
     Indication: Hypertension
     Route: 048

REACTIONS (3)
  - Acute kidney injury [Unknown]
  - Cardiotoxicity [Unknown]
  - Off label use [Unknown]

NARRATIVE: CASE EVENT DATE: 20211010
